FAERS Safety Report 5810846-0 (Version None)
Quarter: 2008Q3

REPORT INFORMATION
  Report Type: 
  Country: None (occurrence: None)
  Receive Date: 20080710
  Receipt Date: 20080630
  Transmission Date: 20090109
  Serious: Yes (Other)
  Sender: FDA-Public Use
  Company Number: CC08-436

PATIENT
  Sex: Female

DRUGS (1)
  1. ALBUTEROL INHALATION [Suspect]
     Indication: ASTHMA
     Dosage: 2 PUFFS, PRN
     Route: 055

REACTIONS (1)
  - DRUG EFFECT DECREASED [None]
